FAERS Safety Report 16205590 (Version 1)
Quarter: 2019Q2

REPORT INFORMATION
  Report Type: Report from Study
  Country: FR (occurrence: FR)
  Receive Date: 20190417
  Receipt Date: 20190417
  Transmission Date: 20190711
  Serious: Yes (Death, Other)
  Sender: FDA-Public Use
  Company Number: FR-ACCORD-121989

PATIENT

DRUGS (2)
  1. OXALIPLATIN. [Suspect]
     Active Substance: OXALIPLATIN
     Indication: MIXED HEPATOCELLULAR CHOLANGIOCARCINOMA
     Dosage: 85-100 MG/M2 WITHIN 2 H, GIVEN EVERY 2 WEEKS
     Route: 042
  2. GEMCITABINE/GEMCITABINE HYDROCHLORIDE [Suspect]
     Active Substance: GEMCITABINE\GEMCITABINE HYDROCHLORIDE
     Indication: MIXED HEPATOCELLULAR CHOLANGIOCARCINOMA
     Dosage: WITHIN 30 MIN
     Route: 042

REACTIONS (2)
  - Off label use [Unknown]
  - Hepatic failure [Fatal]
